FAERS Safety Report 4405324-X (Version None)
Quarter: 2004Q3

REPORT INFORMATION
  Report Type: 
  Country: None (occurrence: None)
  Receive Date: 20040720
  Receipt Date: 20040714
  Transmission Date: 20050211
  Serious: Yes (Hospitalization)
  Sender: FDA-Public Use
  Company Number: DEWYE904315JUL04

PATIENT
  Sex: Female

DRUGS (3)
  1. EFFEXOR XR [Suspect]
     Dosage: 75 MG 1X PER 1 DAY ORAL
     Route: 048
     Dates: start: 20040401
  2. VENLAFAXINE HCL [Suspect]
     Dosage: 37.5 MG 1X PER 1 DAY ORAL
     Route: 048
     Dates: start: 20040301, end: 20040401
  3. INSIDON (OPIPRAMOL HYDROCHLORIDE) [Concomitant]

REACTIONS (1)
  - CIRCULATORY COLLAPSE [None]
